FAERS Safety Report 16814640 (Version 2)
Quarter: 2023Q1

REPORT INFORMATION
  Report Type: Spontaneous
  Country: CA (occurrence: CA)
  Receive Date: 20190917
  Receipt Date: 20230203
  Transmission Date: 20230418
  Serious: Yes (Other)
  Sender: FDA-Public Use
  Company Number: CA-TEVA-2019-CA-1108194

PATIENT
  Age: 85 Year
  Sex: Male

DRUGS (20)
  1. ASPIRIN [Interacting]
     Active Substance: ASPIRIN
     Indication: Product used for unknown indication
     Route: 065
  2. ATORVASTATIN CALCIUM [Interacting]
     Active Substance: ATORVASTATIN CALCIUM
     Indication: Product used for unknown indication
     Route: 065
  3. METOPROLOL [Interacting]
     Active Substance: METOPROLOL
     Indication: Product used for unknown indication
     Route: 065
  4. PANTOPRAZOLE [Interacting]
     Active Substance: PANTOPRAZOLE
     Indication: Product used for unknown indication
     Route: 065
  5. DABIGATRAN ETEXILATE MESYLATE [Interacting]
     Active Substance: DABIGATRAN ETEXILATE MESYLATE
     Indication: Atrial fibrillation
     Dosage: 2 DOSAGE FORMS DAILY;
     Route: 065
  6. DABIGATRAN ETEXILATE MESYLATE [Interacting]
     Active Substance: DABIGATRAN ETEXILATE MESYLATE
     Dosage: 2 DOSAGE FORMS DAILY;
  7. ELIQUIS [Interacting]
     Active Substance: APIXABAN
     Indication: Cerebrovascular accident prophylaxis
     Dosage: 2 DOSAGE FORMS DAILY;
     Route: 065
  8. ELIQUIS [Interacting]
     Active Substance: APIXABAN
     Route: 065
  9. ELIQUIS [Interacting]
     Active Substance: APIXABAN
     Dosage: 10 MILLIGRAM DAILY;
     Route: 065
  10. ELIQUIS [Interacting]
     Active Substance: APIXABAN
     Dosage: 10 MILLIGRAM DAILY;
     Route: 065
  11. METOPROLOL [Suspect]
     Active Substance: METOPROLOL
     Indication: Product used for unknown indication
     Route: 065
  12. ASPIRIN [Suspect]
     Active Substance: ASPIRIN
     Indication: Product used for unknown indication
     Route: 065
  13. ASCORBIC ACID\ERGOCALCIFEROL\NIACINAMIDE\RETINOL\RIBOFLAVIN\THIAMINE [Suspect]
     Active Substance: ASCORBIC ACID\ERGOCALCIFEROL\NIACINAMIDE\RETINOL\RIBOFLAVIN\THIAMINE
     Indication: Product used for unknown indication
     Route: 065
  14. PANTOPRAZOLE SODIUM [Suspect]
     Active Substance: PANTOPRAZOLE SODIUM
     Indication: Product used for unknown indication
     Route: 065
  15. WARFARIN SODIUM [Suspect]
     Active Substance: WARFARIN SODIUM
     Indication: Atrial fibrillation
     Route: 065
  16. DABIGATRAN ETEXILATE MESYLATE [Suspect]
     Active Substance: DABIGATRAN ETEXILATE MESYLATE
     Indication: Atrial fibrillation
     Route: 065
  17. DABIGATRAN ETEXILATE MESYLATE [Suspect]
     Active Substance: DABIGATRAN ETEXILATE MESYLATE
     Route: 065
  18. DABIGATRAN ETEXILATE MESYLATE [Suspect]
     Active Substance: DABIGATRAN ETEXILATE MESYLATE
     Route: 065
  19. DABIGATRAN ETEXILATE MESYLATE [Suspect]
     Active Substance: DABIGATRAN ETEXILATE MESYLATE
     Dosage: 2 DOSAGE FORMS DAILY;
     Route: 065
  20. DABIGATRAN ETEXILATE MESYLATE [Suspect]
     Active Substance: DABIGATRAN ETEXILATE MESYLATE
     Dosage: 300 MILLIGRAM DAILY;
     Route: 065

REACTIONS (3)
  - Cerebrovascular accident [Unknown]
  - Treatment failure [Unknown]
  - Drug interaction [Unknown]
